FAERS Safety Report 10866431 (Version 1)
Quarter: 2015Q1

REPORT INFORMATION
  Report Type: Spontaneous
  Country: US (occurrence: None)
  Receive Date: 20150219
  Receipt Date: 20150219
  Transmission Date: 20150721
  Serious: Yes (Hospitalization)
  Sender: FDA-Public Use
  Company Number: None

PATIENT
  Age: 63 Year
  Sex: Female

DRUGS (1)
  1. HARVONI [Suspect]
     Active Substance: LEDIPASVIR\SOFOSBUVIR
     Dosage: 1 PILL QD ORAL
     Route: 048
     Dates: start: 20150203, end: 20150218

REACTIONS (2)
  - Seizure [None]
  - Mental status changes [None]

NARRATIVE: CASE EVENT DATE: 20150218
